FAERS Safety Report 11559155 (Version 1)
Quarter: 2015Q3

REPORT INFORMATION
  Report Type: Spontaneous
  Country: US (occurrence: US)
  Receive Date: 20150916
  Receipt Date: 20150916
  Transmission Date: 20151125
  Serious: No
  Sender: FDA-Public Use
  Company Number: US-ELI_LILLY_AND_COMPANY-US200808001313

PATIENT
  Sex: Female

DRUGS (1)
  1. FORTEO [Suspect]
     Active Substance: TERIPARATIDE
     Indication: OSTEOPOROSIS

REACTIONS (7)
  - Fatigue [Recovering/Resolving]
  - Discomfort [Recovering/Resolving]
  - Anxiety [Recovering/Resolving]
  - Malaise [Recovering/Resolving]
  - Stress [Recovering/Resolving]
  - Insomnia [Recovering/Resolving]
  - Feeling abnormal [Recovered/Resolved]
